FAERS Safety Report 18842044 (Version 10)
Quarter: 2025Q4

REPORT INFORMATION
  Report Type: Report from Study
  Country: US (occurrence: US)
  Receive Date: 20210203
  Receipt Date: 20251218
  Transmission Date: 20260118
  Serious: Yes (Hospitalization, Other)
  Sender: TAKEDA
  Company Number: US-SHIRE-US201842178AA

PATIENT
  Age: 66 Year
  Sex: Female

DRUGS (2)
  1. HUMAN IMMUNOGLOBULIN G [Suspect]
     Active Substance: HUMAN IMMUNOGLOBULIN G
     Indication: Primary immunodeficiency syndrome
     Dosage: UNK
  2. HUMAN IMMUNOGLOBULIN G [Suspect]
     Active Substance: HUMAN IMMUNOGLOBULIN G
     Indication: Immunodeficiency common variable

REACTIONS (40)
  - Leukaemia [Unknown]
  - Peripheral nerve injury [Not Recovered/Not Resolved]
  - Sinusitis [Not Recovered/Not Resolved]
  - Intestinal obstruction [Unknown]
  - Neoplasm malignant [Unknown]
  - Skin cancer [Unknown]
  - Cerebral haemorrhage [Unknown]
  - Neuropathy peripheral [Unknown]
  - Ear infection [Unknown]
  - Fall [Unknown]
  - Cerebrovascular accident [Unknown]
  - Lower respiratory tract infection [Unknown]
  - Cellulitis [Unknown]
  - Pleurisy [Unknown]
  - Feeding disorder [Unknown]
  - Oral mucosal blistering [Unknown]
  - Poor venous access [Unknown]
  - Immunoglobulins decreased [Unknown]
  - Facial pain [Unknown]
  - Illness [Unknown]
  - Needle issue [Unknown]
  - White blood cell count decreased [Unknown]
  - Infusion site discomfort [Unknown]
  - Infusion site erythema [Unknown]
  - Pyrexia [Unknown]
  - Infusion site swelling [Unknown]
  - Skin burning sensation [Unknown]
  - Oropharyngeal discomfort [Unknown]
  - Thermal burn [Unknown]
  - Device related infection [Unknown]
  - Neoplasm [Unknown]
  - COVID-19 [Unknown]
  - Erythema [Unknown]
  - Vomiting [Unknown]
  - Malaise [Unknown]
  - Injection site pain [Unknown]
  - Fatigue [Unknown]
  - Diarrhoea [Not Recovered/Not Resolved]
  - Weight decreased [Unknown]
  - Blood potassium decreased [Unknown]

NARRATIVE: CASE EVENT DATE: 20181026
